FAERS Safety Report 6215355-5 (Version None)
Quarter: 2009Q2

REPORT INFORMATION
  Report Type: 
  Country: None (occurrence: None)
  Receive Date: 20090604
  Receipt Date: 20090525
  Transmission Date: 20091009
  Serious: Yes (Death, Hospitalization)
  Sender: FDA-Public Use
  Company Number: PH-BAXTER-2009BH009188

PATIENT
  Age: 64 Year
  Sex: Male

DRUGS (1)
  1. DIANEAL [Suspect]
     Indication: RENAL FAILURE
     Route: 033
     Dates: start: 20081115

REACTIONS (3)
  - CATHETER RELATED COMPLICATION [None]
  - DEATH [None]
  - POSTOPERATIVE WOUND COMPLICATION [None]
